FAERS Safety Report 22200861 (Version 2)
Quarter: 2023Q2

REPORT INFORMATION
  Report Type: Spontaneous
  Country: IT (occurrence: IT)
  Receive Date: 20230412
  Receipt Date: 20230420
  Transmission Date: 20230722
  Serious: Yes (Other)
  Sender: FDA-Public Use
  Company Number: IT-AUROBINDO-AUR-APL-2023-013696

PATIENT
  Age: 44 Year
  Sex: Male

DRUGS (7)
  1. SEVELAMER CARBONATE [Suspect]
     Active Substance: SEVELAMER CARBONATE
     Indication: Hyperphosphataemia
     Dosage: 800 MILLIGRAM, TWO TIMES A DAY (1 DOSAGE FORM, BID; 800 MG 1 TABLET INITIALLY)
     Route: 065
     Dates: start: 20151209, end: 2017
  2. SEVELAMER CARBONATE [Suspect]
     Active Substance: SEVELAMER CARBONATE
     Dosage: 2 DOSAGE FORM (2 DOSAGE FORM; 2 TABLET FOR EACH MAIN MEAL THEREAFTER)
     Route: 065
     Dates: start: 2017
  3. LANTHANUM CARBONATE [Suspect]
     Active Substance: LANTHANUM CARBONATE
     Indication: Hyperphosphataemia
     Dosage: 1000 MILLIGRAM, TWO TIMES A DAY
     Route: 065
     Dates: start: 20170926
  4. CALCITRIOL [Concomitant]
     Active Substance: CALCITRIOL
     Indication: Product used for unknown indication
     Dosage: 1 DOSAGE FORM (1 DOSAGE FORM; 0.25MCG 1 TABLET)
     Route: 065
  5. EPOETIN ZETA [Concomitant]
     Active Substance: ERYTHROPOIETIN
     Indication: Product used for unknown indication
     Dosage: UNK
     Route: 065
  6. FERINJECT [Concomitant]
     Active Substance: FERRIC CARBOXYMALTOSE
     Indication: Product used for unknown indication
     Dosage: UNK 50 MG/ML 1 FL OF 10 ML
     Route: 065
  7. RAMIPRIL [Concomitant]
     Active Substance: RAMIPRIL
     Indication: Hypertension
     Dosage: 1 DOSAGE FORM (1 DOSAGE FORM; 10MG 1 TABLET)
     Route: 065

REACTIONS (3)
  - Abdominal pain [Unknown]
  - Diverticulitis [Recovering/Resolving]
  - Diverticulum intestinal [Unknown]
